FAERS Safety Report 16769205 (Version 1)
Quarter: 2019Q3

REPORT INFORMATION
  Report Type: Spontaneous
  Country: FR (occurrence: FR)
  Receive Date: 20190903
  Receipt Date: 20190903
  Transmission Date: 20191005
  Serious: Yes (Hospitalization, Other)
  Sender: FDA-Public Use
  Company Number: FR-ALLERGAN-1935393US

PATIENT
  Sex: Female

DRUGS (4)
  1. MILNACIPRAN - BP [Suspect]
     Active Substance: MILNACIPRAN
     Indication: INTENTIONAL OVERDOSE
     Dosage: 96 DOSAGE FORM IN TOTAL
     Route: 048
     Dates: start: 20190724, end: 20190724
  2. ATARAX [Suspect]
     Active Substance: HYDROXYZINE HYDROCHLORIDE
     Indication: INTENTIONAL OVERDOSE
     Dosage: UNKNOWN
     Route: 048
     Dates: start: 20190724, end: 20190724
  3. SERTRALINE [Suspect]
     Active Substance: SERTRALINE HYDROCHLORIDE
     Indication: INTENTIONAL OVERDOSE
     Dosage: 8 DOSAGE FORM IN TOTAL
     Dates: start: 20190724, end: 20190724
  4. LORMETAZEPAM [Suspect]
     Active Substance: LORMETAZEPAM
     Indication: INTENTIONAL OVERDOSE
     Dosage: UNKNOWN
     Route: 048
     Dates: start: 20190724, end: 20190724

REACTIONS (2)
  - Toxicity to various agents [Unknown]
  - Intentional overdose [Unknown]
